FAERS Safety Report 7664894-9 (Version None)
Quarter: 2011Q3

REPORT INFORMATION
  Report Type: 
  Country: None (occurrence: None)
  Receive Date: 20110806
  Receipt Date: 20110218
  Transmission Date: 20111222
  Serious: No
  Sender: FDA-Public Use
  Company Number: US-ABBOTT-10P-163-0659514-00

PATIENT
  Sex: Male
  Weight: 90.8 kg

DRUGS (5)
  1. NIASPAN [Suspect]
     Indication: BLOOD CHOLESTEROL INCREASED
  2. PRAVASTATIN [Concomitant]
     Indication: BLOOD CHOLESTEROL
  3. METOPROLOL TARTRATE [Concomitant]
     Indication: BLOOD PRESSURE
  4. NIASPAN [Suspect]
     Indication: HYPERCHOLESTEROLAEMIA
     Route: 048
     Dates: start: 20100701
  5. LISINOPRIL AND HYDROCHLOROTHIAZIDE [Concomitant]
     Indication: BLOOD PRESSURE

REACTIONS (5)
  - SKIN WARM [None]
  - ERYTHEMA [None]
  - HYPERHIDROSIS [None]
  - FLUSHING [None]
  - HOT FLUSH [None]
